FAERS Safety Report 25851613 (Version 1)
Quarter: 2025Q3

REPORT INFORMATION
  Report Type: Spontaneous
  Country: ID (occurrence: ID)
  Receive Date: 20250926
  Receipt Date: 20250926
  Transmission Date: 20251021
  Serious: Yes (Death)
  Sender: RANBAXY
  Company Number: ID-SUN PHARMACEUTICAL INDUSTRIES LTD-2025RR-528317

PATIENT
  Age: 31 Year
  Sex: Female

DRUGS (5)
  1. DOBUTAMINE [Suspect]
     Active Substance: DOBUTAMINE HYDROCHLORIDE
     Indication: Pulmonary hypertensive crisis
     Route: 040
  2. SILDENAFIL [Suspect]
     Active Substance: SILDENAFIL
     Indication: Pulmonary hypertensive crisis
     Dosage: 40 MILLIGRAM, TID
     Route: 065
  3. DIGOXIN [Suspect]
     Active Substance: DIGOXIN
     Indication: Pulmonary hypertensive crisis
     Dosage: 0.25 MILLIGRAM, DAILY
     Route: 065
  4. CODEINE [Suspect]
     Active Substance: CODEINE
     Indication: Pulmonary hypertensive crisis
     Dosage: 10 MILLIGRAM, TID
     Route: 065
  5. ILOPROST [Suspect]
     Active Substance: ILOPROST
     Indication: Pulmonary hypertensive crisis
     Route: 055

REACTIONS (1)
  - Condition aggravated [Fatal]
